FAERS Safety Report 8881446 (Version 1)
Quarter: 2012Q4

REPORT INFORMATION
  Report Type: 
  Country: JP (occurrence: JP)
  Receive Date: 20121102
  Receipt Date: 20121102
  Transmission Date: 20130627
  Serious: Yes (Death)
  Sender: FDA-Public Use
  Company Number: JP-SP-2012-10101

PATIENT
  Age: 62 Year
  Sex: Female

DRUGS (2)
  1. IMMUCYST [Suspect]
     Indication: BLADDER CANCER
     Route: 043
  2. THERARUBICIN [Concomitant]
     Indication: URETHRAL CANCER
     Route: 043

REACTIONS (5)
  - Transitional cell carcinoma [Fatal]
  - Reiter^s syndrome [Fatal]
  - Metastases to lung [Fatal]
  - Metastases to lymph nodes [Fatal]
  - Bladder disorder [Fatal]
